FAERS Safety Report 9333617 (Version 2)
Quarter: 2013Q4

REPORT INFORMATION
  Report Type: Spontaneous
  Country: US (occurrence: US)
  Receive Date: 20130606
  Receipt Date: 20131008
  Transmission Date: 20140711
  Serious: No
  Sender: FDA-Public Use
  Company Number: US-AMGEN-USASP2012081451

PATIENT
  Age: 70 Year
  Sex: Female

DRUGS (5)
  1. PROLIA [Suspect]
     Indication: OSTEOPOROSIS POSTMENOPAUSAL
     Dosage: UNK UNK, Q6MO
     Dates: start: 20120710
  2. FLONASE [Concomitant]
     Dosage: 1 DF, QD
  3. GLUCOSAMINE [Concomitant]
  4. CALCIUM [Concomitant]
  5. VAGIFEM [Concomitant]

REACTIONS (4)
  - Pain [Recovered/Resolved]
  - Inappropriate schedule of drug administration [Unknown]
  - Arthralgia [Recovered/Resolved]
  - Back pain [Recovered/Resolved]
